FAERS Safety Report 17003177 (Version 1)
Quarter: 2019Q4

REPORT INFORMATION
  Report Type: Spontaneous
  Country: US (occurrence: US)
  Receive Date: 20191107
  Receipt Date: 20191107
  Transmission Date: 20200122
  Serious: Yes (Hospitalization, Other)
  Sender: FDA-Public Use
  Company Number: US-BEH-2019108834

PATIENT
  Age: 23 Year
  Sex: Male

DRUGS (2)
  1. HUMAN IMMUNOGLOBULIN (INN) [Suspect]
     Active Substance: HUMAN IMMUNOGLOBULIN G
     Dosage: UNK
     Route: 042
  2. HUMAN IMMUNOGLOBULIN (INN) [Suspect]
     Active Substance: HUMAN IMMUNOGLOBULIN G
     Indication: STIFF PERSON SYNDROME
     Route: 042

REACTIONS (2)
  - Headache [Recovered/Resolved]
  - Meningitis aseptic [Recovered/Resolved]
